FAERS Safety Report 6228006-0 (Version None)
Quarter: 2009Q2

REPORT INFORMATION
  Report Type: 
  Country: None (occurrence: None)
  Receive Date: 20090611
  Receipt Date: 20090525
  Transmission Date: 20091009
  Serious: Yes (Hospitalization, Other)
  Sender: FDA-Public Use
  Company Number: FR-GENENTECH-284529

PATIENT
  Age: 69 Year
  Sex: Male

DRUGS (2)
  1. MABTHERA [Suspect]
     Indication: WALDENSTROM'S MACROGLOBULINAEMIA
     Route: 042
  2. FLUDARABINE PHOSPHATE [Suspect]
     Indication: WALDENSTROM'S MACROGLOBULINAEMIA

REACTIONS (6)
  - DRUG INEFFECTIVE [None]
  - HEPATOSPLENOMEGALY [None]
  - HYPERVISCOSITY SYNDROME [None]
  - NEUROPATHY PERIPHERAL [None]
  - RENAL FAILURE [None]
  - RENAL TUBULAR NECROSIS [None]
